FAERS Safety Report 17275377 (Version 1)
Quarter: 2020Q1

REPORT INFORMATION
  Report Type: Spontaneous
  Country: FR (occurrence: FR)
  Receive Date: 20200116
  Receipt Date: 20200116
  Transmission Date: 20200409
  Serious: No
  Sender: FDA-Public Use
  Company Number: FR-BEH-2020111451

PATIENT
  Sex: Female

DRUGS (1)
  1. RESPREEZA [Suspect]
     Active Substance: .ALPHA.1-PROTEINASE INHIBITOR HUMAN
     Dosage: 12 GRAM
     Route: 042

REACTIONS (5)
  - Off label use [Unknown]
  - Product closure issue [Unknown]
  - No adverse event [Unknown]
  - Device issue [Unknown]
  - Accidental underdose [Unknown]
